FAERS Safety Report 7817574-0 (Version None)
Quarter: 2011Q4

REPORT INFORMATION
  Report Type: 
  Country: None (occurrence: None)
  Receive Date: 20111017
  Receipt Date: 20111007
  Transmission Date: 20120403
  Serious: Yes (Other)
  Sender: FDA-Public Use
  Company Number: PHHY2011FR89124

PATIENT
  Sex: Male

DRUGS (7)
  1. ASPIRIN [Concomitant]
     Dosage: 75 MG, QD
  2. RITALIN [Suspect]
     Dosage: 30 MG, BID
     Dates: start: 20110330
  3. SINEMET [Concomitant]
     Dosage: 100MG LEVODOPA+ 10 MG CARBIDOPA, UNK
  4. SIMVASTATIN [Concomitant]
     Dosage: 10 MG, QD
     Route: 048
  5. RITALIN [Suspect]
     Dosage: 30 MG, UNK
  6. PRAMIPEXOLE DIHYDROCHLORIDE [Concomitant]
     Indication: PARKINSON'S DISEASE
     Dosage: 0.7 MG, QID
     Route: 048
  7. VERAPAMIL [Concomitant]
     Dosage: 240 MG, QD

REACTIONS (3)
  - IMPULSIVE BEHAVIOUR [None]
  - LIBIDO INCREASED [None]
  - GAIT DISTURBANCE [None]
